FAERS Safety Report 18377067 (Version 2)
Quarter: 2020Q4

REPORT INFORMATION
  Report Type: Spontaneous
  Country: JP (occurrence: JP)
  Receive Date: 20201013
  Receipt Date: 20201030
  Transmission Date: 20210114
  Serious: Yes (Hospitalization, Other)
  Sender: FDA-Public Use
  Company Number: JP-GLAXOSMITHKLINE-JP2020JPN199278

PATIENT
  Age: 70 Year
  Sex: Male
  Weight: 57.4 kg

DRUGS (9)
  1. ITRACONAZOLE. [Concomitant]
     Active Substance: ITRACONAZOLE
     Dosage: 50 MG, QD, AFTER SUPPER
  2. CLOSTRIDIUM BUTYRICUM TABLETS [Concomitant]
     Dosage: 20 MG, TID, AFTER EVERY MEAL
  3. DEXAMETHASONE. [Concomitant]
     Active Substance: DEXAMETHASONE
     Dosage: 16.5 MG, QD, D1, D8
     Route: 041
  4. ALENDRONATE SODIUM. [Concomitant]
     Active Substance: ALENDRONATE SODIUM
     Dosage: 35 MG, QD, UPON WAKING
  5. LANSOPRAZOLE TABLET [Concomitant]
     Active Substance: LANSOPRAZOLE
     Dosage: 15 MG, QD, AFTER SUPPER
  6. SULFAMETHAZOLE + TRIMETHOPRIM [Concomitant]
     Dosage: 1 DF, IN THE MORNING AND IN THE EVENING ON WEDNESDAY AND SATURDAY
     Route: 048
  7. METFORMIN HYDROCHLORIDE. [Concomitant]
     Active Substance: METFORMIN HYDROCHLORIDE
     Dosage: 250 MG, BID, AFTER BREAKFAST AND SUPPER
  8. MAGNESIUM OXIDE TABLET [Concomitant]
     Dosage: 330 MG, TID, AFTER EVERY MEAL
  9. ACYCLOVIR. [Suspect]
     Active Substance: ACYCLOVIR
     Dosage: 200 MG, QD, AFTER SUPPER
     Route: 048

REACTIONS (6)
  - Rash [Recovering/Resolving]
  - Acute lymphocytic leukaemia [Unknown]
  - Headache [Recovering/Resolving]
  - Oedema peripheral [Recovering/Resolving]
  - Aphasia [Recovering/Resolving]
  - Erythema [Recovering/Resolving]
